FAERS Safety Report 16823584 (Version 1)
Quarter: 2019Q3

REPORT INFORMATION
  Report Type: Spontaneous
  Country: CN (occurrence: CN)
  Receive Date: 20190918
  Receipt Date: 20190918
  Transmission Date: 20191005
  Serious: Yes (Other)
  Sender: FDA-Public Use
  Company Number: CN-BAXTER-2019BAX018154

PATIENT
  Age: 49 Year
  Sex: Female
  Weight: 47 kg

DRUGS (4)
  1. ENDOXAN [Suspect]
     Active Substance: CYCLOPHOSPHAMIDE
     Indication: BREAST CANCER FEMALE
     Dosage: RATE: ABOUT 30 TO 40 DROPS PER MINUTE, DILUTED WITH 0.9 % SODIUM CHLORIDE OF 250 ML
     Route: 041
     Dates: start: 20190805, end: 20190805
  2. PIRARUBICIN HYDROCHLORIDE [Suspect]
     Active Substance: PIRARUBICIN HYDROCHLORIDE
     Indication: BREAST CANCER FEMALE
     Dosage: RATE: ABOUT 30 TO 40 DROPS PER MINUTE, DILUTED WITH 2.5% GLUCOSE OF 250 ML
     Route: 041
     Dates: start: 20190805, end: 20190805
  3. GLUCOSE [Suspect]
     Active Substance: DEXTROSE
     Indication: MEDICATION DILUTION
     Dosage: RATE: ABOUT 30 TO 40 DROPS PER MINUTE, DILUENT FOR PIRARUBICIN HYDROCHLORIDE OF 80 MG
     Route: 041
     Dates: start: 20190805, end: 20190805
  4. 0.9% SODIUM CHLORIDE INJECTION [Suspect]
     Active Substance: SODIUM CHLORIDE
     Indication: MEDICATION DILUTION
     Dosage: RATE: ABOUT 30 TO 40 DROPS PER MINUTE, DILUENT FOR ENDOXAN OF 0.9 GRAM
     Route: 041
     Dates: start: 20190805, end: 20190805

REACTIONS (1)
  - Leukopenia [Unknown]

NARRATIVE: CASE EVENT DATE: 20190810
